FAERS Safety Report 15134079 (Version 2)
Quarter: 2018Q3

REPORT INFORMATION
  Report Type: Spontaneous
  Country: SE (occurrence: SE)
  Receive Date: 20180712
  Receipt Date: 20180829
  Transmission Date: 20181010
  Serious: Yes (Hospitalization)
  Sender: FDA-Public Use
  Company Number: SE-TEVA-2018-SE-924071

PATIENT
  Age: 87 Year
  Sex: Male

DRUGS (7)
  1. LASIX RETARD 30 MG DEPOTKAPSEL, H?RD [Concomitant]
     Route: 065
  2. ALVEDON 500 MG FILMDRAGERAD TABLETT [Concomitant]
     Route: 065
  3. ATARAX 10 MG FILMDRAGERAD TABLETT [Concomitant]
     Route: 065
  4. GABAPENTIN 1A FARMA 300 MG KAPSEL, H?RD [Concomitant]
     Route: 065
  5. BEHEPAN 1 MG FILMDRAGERAD TABLETT [Concomitant]
     Route: 065
  6. BICALUTAMID SANDOZ 150 MG FILMDRAGERAD TABLETT [Concomitant]
     Route: 065
  7. NEOTIGASON [Suspect]
     Active Substance: ACITRETIN
     Indication: PSORIASIS
     Dosage: 25 MILLIGRAM DAILY;
     Route: 048
     Dates: start: 201710, end: 20180509

REACTIONS (1)
  - Eosinophilia [Recovered/Resolved]

NARRATIVE: CASE EVENT DATE: 201805
